FAERS Safety Report 6268956-2 (Version None)
Quarter: 2009Q3

REPORT INFORMATION
  Report Type: 
  Country: None (occurrence: None)
  Receive Date: 20090714
  Receipt Date: 20090714
  Transmission Date: 20100115
  Serious: Yes (Disabling, Other)
  Sender: FDA-Public Use
  Company Number: None

PATIENT
  Sex: Female
  Weight: 70.3075 kg

DRUGS (2)
  1. LEVAQUIN [Suspect]
     Indication: LYME DISEASE
     Dosage: 1 TABLET 1 TIME DAILY PO
     Route: 048
     Dates: start: 20090410, end: 20090602
  2. TEQUIN [Suspect]
     Indication: SINUSITIS
     Dosage: PO COURSE PRESCRIBED
     Route: 048

REACTIONS (6)
  - COMPLEX REGIONAL PAIN SYNDROME [None]
  - MYALGIA [None]
  - PAIN IN EXTREMITY [None]
  - TENDON DISORDER [None]
  - WALKING AID USER [None]
  - WHEELCHAIR USER [None]
